FAERS Safety Report 10444529 (Version 1)
Quarter: 2014Q3

REPORT INFORMATION
  Report Type: Spontaneous
  Country: US (occurrence: None)
  Receive Date: 20140909
  Receipt Date: 20140909
  Transmission Date: 20150326
  Serious: No
  Sender: FDA-Public Use
  Company Number: None

PATIENT
  Age: 50 Year
  Sex: Female
  Weight: 60.78 kg

DRUGS (1)
  1. MAGNEVIST [Suspect]
     Active Substance: GADOPENTETATE DIMEGLUMINE
     Indication: NUCLEAR MAGNETIC RESONANCE IMAGING
     Dosage: 20CC JUST ONCE INTO A VEIN
     Route: 042

REACTIONS (25)
  - Haematochezia [None]
  - Pain [None]
  - Skin tightness [None]
  - Pruritus generalised [None]
  - Angiopathy [None]
  - Vasodilatation [None]
  - Abdominal pain [None]
  - Peripheral coldness [None]
  - Muscle spasms [None]
  - Dyspnoea [None]
  - Haemoptysis [None]
  - Musculoskeletal stiffness [None]
  - Burning sensation [None]
  - Blood pressure increased [None]
  - Neuralgia [None]
  - Headache [None]
  - Blood urine present [None]
  - Swelling [None]
  - Paraesthesia [None]
  - Skin discolouration [None]
  - Heart rate increased [None]
  - Abdominal distension [None]
  - Constipation [None]
  - Joint stiffness [None]
  - Rash [None]

NARRATIVE: CASE EVENT DATE: 20140728
